FAERS Safety Report 16943546 (Version 3)
Quarter: 2019Q4

REPORT INFORMATION
  Report Type: Report from Study
  Country: KR (occurrence: KR)
  Receive Date: 20191022
  Receipt Date: 20191101
  Transmission Date: 20200122
  Serious: Yes (Hospitalization)
  Sender: FDA-Public Use
  Company Number: KR-ROCHE-2373625

PATIENT
  Age: 55 Year
  Sex: Female
  Weight: 61.4 kg

DRUGS (35)
  1. CYCLOPHOSPHAMIDE. [Suspect]
     Active Substance: CYCLOPHOSPHAMIDE
     Indication: HER-2 POSITIVE BREAST CANCER
     Dosage: DATE OF MOST RECENT DOSE OF CYCLOPHOSPHAMIDE PRIOR TO ONSET OF STEATOHEPATITIS: 31/MAY/2019 (966 MG)
     Route: 042
     Dates: start: 20190417
  2. CHLORPHENIRAMINE [CHLORPHENAMINE] [Concomitant]
     Active Substance: CHLORPHENIRAMINE
     Indication: PREMEDICATION
  3. DEXAMETHASONE. [Concomitant]
     Active Substance: DEXAMETHASONE
     Indication: VOMITING
     Route: 042
     Dates: start: 20190621
  4. CEFAZOLIN [Concomitant]
     Active Substance: CEFAZOLIN
     Route: 065
     Dates: start: 20190826, end: 20190827
  5. SOLONDO [Concomitant]
     Active Substance: PREDNISOLONE
     Route: 048
     Dates: start: 20190729, end: 20190807
  6. DOXORUBICIN [Suspect]
     Active Substance: DOXORUBICIN
     Indication: HER-2 POSITIVE BREAST CANCER
     Dosage: DATE OF MOST RECENT DOSE OF DOXORUBICIN PRIOR TO ONSET OF STEATOHEPATITIS: 31/MAY/2019 (96.6 MG)
     Route: 042
     Dates: start: 20190417
  7. ESOMEPRAZOLE. [Concomitant]
     Active Substance: ESOMEPRAZOLE MAGNESIUM
     Dosage: PEPTIC ULCERATIVE AGENT
     Route: 048
     Dates: start: 20190517
  8. MAGNESIUM HYDROXIDE. [Concomitant]
     Active Substance: MAGNESIUM HYDROXIDE
     Indication: CONSTIPATION
     Route: 065
     Dates: start: 20190829, end: 20190901
  9. HYDROCORTISONE. [Concomitant]
     Active Substance: HYDROCORTISONE
     Route: 042
     Dates: start: 20190827, end: 20190827
  10. TRASTUZUMAB. [Suspect]
     Active Substance: TRASTUZUMAB
     Indication: HER-2 POSITIVE BREAST CANCER
     Dosage: LOADING DOSE?DATE OF MOST RECENT DOSE OF TRASTUZUMAB PRIOR TO THE ONSET OF STEATOHEPATITIS: 21/JUN/2
     Route: 042
     Dates: start: 20190621
  11. KETOCIN [KETOROLAC TROMETHAMINE] [Concomitant]
     Route: 065
     Dates: start: 20190827, end: 20190901
  12. PREDNISOLONE. [Concomitant]
     Active Substance: PREDNISOLONE
     Route: 048
     Dates: start: 20190829, end: 20190829
  13. PACLITAXEL. [Suspect]
     Active Substance: PACLITAXEL
     Indication: HER-2 POSITIVE BREAST CANCER
     Dosage: DATE OF MOST RECENT DOSE OF PACLITAXEL PRIOR TO ONSET OF STEATOHEPATITIS: 05/JUL/2019 (128.8 MG)
     Route: 042
     Dates: start: 20190621
  14. GASTER [FAMOTIDINE] [Concomitant]
     Indication: VOMITING
  15. HYDROCORTISONE. [Concomitant]
     Active Substance: HYDROCORTISONE
     Route: 042
     Dates: start: 20190828, end: 20190828
  16. SOLONDO [Concomitant]
     Active Substance: PREDNISOLONE
     Indication: ALANINE AMINOTRANSFERASE INCREASED
     Route: 048
     Dates: start: 20190722, end: 20190728
  17. BEECOM-C [Concomitant]
     Dosage: HEALTH SUPPLEMENT
     Route: 048
     Dates: start: 2011
  18. DEXAMETHASONE. [Concomitant]
     Active Substance: DEXAMETHASONE
     Indication: NAUSEA
  19. GASTER [FAMOTIDINE] [Concomitant]
     Indication: NAUSEA
     Route: 065
     Dates: start: 20190621
  20. KYTRIL [Concomitant]
     Active Substance: GRANISETRON HYDROCHLORIDE
     Indication: NAUSEA
     Route: 065
     Dates: start: 20190621
  21. TRIDOL [Concomitant]
     Active Substance: TRAMADOL HYDROCHLORIDE
     Route: 065
     Dates: start: 20190805, end: 20190806
  22. PLACEBO [Suspect]
     Active Substance: UNSPECIFIED INGREDIENT
     Indication: HER-2 POSITIVE BREAST CANCER
     Dosage: DATE OF MOST RECENT DOSE PRIOR TO ONSET OF EVENT : 21/JUN/2019.
     Route: 042
     Dates: start: 20190417
  23. LEGALON [Concomitant]
     Active Substance: DIETARY SUPPLEMENT\HERBALS\MILK THISTLE
     Dosage: LIVER PROTECTION
     Route: 048
     Dates: start: 20190411
  24. ACLOFEN [Concomitant]
     Dosage: PAIN CONTROL
     Route: 065
  25. KYTRIL [Concomitant]
     Active Substance: GRANISETRON HYDROCHLORIDE
     Indication: VOMITING
  26. NASEA [Concomitant]
     Active Substance: RAMOSETRON HYDROCHLORIDE
     Indication: VOMITING
  27. PREDNISOLONE. [Concomitant]
     Active Substance: PREDNISOLONE
     Route: 048
     Dates: start: 20190830, end: 20190831
  28. PERTUZUMAB. [Suspect]
     Active Substance: PERTUZUMAB
     Indication: HER-2 POSITIVE BREAST CANCER
     Dosage: LOADING DOSE?DATE OF MOST RECENT DOSE OF PERTUZUMAB PRIOR TO ONSET OF STEATOHEPATITIS: 21/JUN/2019 (
     Route: 042
     Dates: start: 20190621
  29. ATACAND PLUS [Concomitant]
     Active Substance: CANDESARTAN CILEXETIL\HYDROCHLOROTHIAZIDE
     Indication: HYPERTENSION
     Dosage: UNIT- UNKNOWN
     Route: 048
     Dates: start: 2011
  30. ACETAMINOPHEN. [Concomitant]
     Active Substance: ACETAMINOPHEN
     Indication: HYPERSENSITIVITY
     Route: 065
     Dates: start: 20190621
  31. PETHIDINE [Concomitant]
     Active Substance: MEPERIDINE
     Indication: SEDATION
     Route: 065
     Dates: start: 20190805, end: 20190805
  32. NASEA [Concomitant]
     Active Substance: RAMOSETRON HYDROCHLORIDE
     Indication: NAUSEA
     Route: 065
     Dates: start: 20190827, end: 20190827
  33. ANFRADE [Concomitant]
     Indication: HYPERLIPIDAEMIA
     Route: 048
     Dates: start: 2011
  34. URSA [Concomitant]
     Active Substance: URSODIOL
     Dosage: LIVER PROTECTION
     Route: 048
     Dates: start: 20190411
  35. CHLORPHENIRAMINE [CHLORPHENAMINE] [Concomitant]
     Active Substance: CHLORPHENIRAMINE
     Indication: HYPERSENSITIVITY
     Route: 065
     Dates: start: 20190621

REACTIONS (1)
  - Steatohepatitis [Not Recovered/Not Resolved]

NARRATIVE: CASE EVENT DATE: 20190712
